FAERS Safety Report 22274514 (Version 2)
Quarter: 2023Q2

REPORT INFORMATION
  Report Type: Spontaneous
  Country: CA (occurrence: CA)
  Receive Date: 20230502
  Receipt Date: 20230505
  Transmission Date: 20230721
  Serious: Yes (Life-Threatening)
  Sender: FDA-Public Use
  Company Number: CA-GLAXOSMITHKLINE-CA2023GSK063198

PATIENT

DRUGS (14)
  1. BUPROPION HYDROCHLORIDE XL [Suspect]
     Active Substance: BUPROPION HYDROCHLORIDE
     Indication: Bipolar disorder
     Dosage: 6.25 MG, 1D
  2. VENLAFAXINE [Suspect]
     Active Substance: VENLAFAXINE HYDROCHLORIDE
     Indication: Bipolar disorder
     Dosage: 262.5 MG, 1D
  3. VENLAFAXINE [Suspect]
     Active Substance: VENLAFAXINE HYDROCHLORIDE
     Dosage: UNK
  4. ZOLPIDEM [Suspect]
     Active Substance: ZOLPIDEM TARTRATE
     Indication: Bipolar disorder
     Dosage: 10 MG( 1 IN 1 BEDTIME)
  5. QUETIAPINE [Suspect]
     Active Substance: QUETIAPINE
     Indication: Bipolar disorder
     Dosage: 300 MG(1 IN 1 BEDTIME)
  6. CLONAZEPAM [Suspect]
     Active Substance: CLONAZEPAM
     Indication: Bipolar disorder
     Dosage: 1 MG BEFORE NOON
     Dates: start: 2019
  7. CLONAZEPAM [Suspect]
     Active Substance: CLONAZEPAM
     Indication: Generalised anxiety disorder
     Dosage: 2 MG (1 IN 1 BEDTIME)
  8. CLONAZEPAM [Suspect]
     Active Substance: CLONAZEPAM
     Dosage: 3 MG, QD (1 IN 1 D)
  9. CLONAZEPAM [Suspect]
     Active Substance: CLONAZEPAM
     Dosage: (0.25-0.5MG AT BEDTIME)
  10. CLONAZEPAM [Suspect]
     Active Substance: CLONAZEPAM
     Dosage: 0.5 MG
  11. QUETIAPINE [Suspect]
     Active Substance: QUETIAPINE
     Indication: Bipolar disorder
     Dosage: 25MG TO 50MG PRN) (1 IN 1 D)
  12. QUETIAPINE [Suspect]
     Active Substance: QUETIAPINE
     Dosage: 150 MG (50 MG,1 IN 8 HR)
  13. TRAZODONE [Suspect]
     Active Substance: TRAZODONE HYDROCHLORIDE
     Indication: Bipolar disorder
     Dosage: 50-150 MG HS PRN (1 IN 1 BEDTIME)
  14. PRAMIPEXOLE [Concomitant]
     Active Substance: PRAMIPEXOLE
     Indication: Restless legs syndrome
     Dosage: 0.25 MG 1 IN 1D

REACTIONS (1)
  - Therapy non-responder [Unknown]
